FAERS Safety Report 7082634-1 (Version None)
Quarter: 2010Q4

REPORT INFORMATION
  Report Type: 
  Country: None (occurrence: None)
  Receive Date: 20101104
  Receipt Date: 20101025
  Transmission Date: 20110411
  Serious: Yes (Other)
  Sender: FDA-Public Use
  Company Number: US-JNJFOC-20101007367

PATIENT
  Sex: Female
  Weight: 55.79 kg

DRUGS (4)
  1. FENTANYL CITRATE [Suspect]
     Indication: PAIN
     Route: 062
  2. FENTANYL CITRATE [Suspect]
     Dosage: NDC#0781-7243-55
     Route: 062
  3. LANTUS [Concomitant]
     Indication: DIABETES MELLITUS
     Dosage: 12 UNITS DAILY
     Route: 058
  4. INDERAL [Concomitant]
     Indication: HYPERTENSION
     Route: 048

REACTIONS (6)
  - DIABETES MELLITUS [None]
  - LIVER FUNCTION TEST ABNORMAL [None]
  - PRODUCT ADHESION ISSUE [None]
  - TREMOR [None]
  - WEIGHT INCREASED [None]
  - WRONG TECHNIQUE IN DRUG USAGE PROCESS [None]
